FAERS Safety Report 9157707 (Version 3)
Quarter: 2013Q2

REPORT INFORMATION
  Report Type: Spontaneous
  Country: US (occurrence: US)
  Receive Date: 20130312
  Receipt Date: 20130426
  Transmission Date: 20140414
  Serious: Yes (Hospitalization)
  Sender: FDA-Public Use
  Company Number: US-INCYTE CORPORATION-2013IN000455

PATIENT
  Sex: Female

DRUGS (1)
  1. JAKAFI [Suspect]
     Indication: CHRONIC MYELOID LEUKAEMIA
     Dosage: 5 MG, BID
     Route: 048
     Dates: start: 20121211

REACTIONS (2)
  - Hospitalisation [Unknown]
  - Drug dispensing error [None]
